FAERS Safety Report 9482388 (Version 2)
Quarter: 2013Q3

REPORT INFORMATION
  Report Type: Spontaneous
  Country: DE (occurrence: DE)
  Receive Date: 20130828
  Receipt Date: 20130828
  Transmission Date: 20140515
  Serious: Yes (Other)
  Sender: FDA-Public Use
  Company Number: DE-PFIZER INC-2013248231

PATIENT
  Sex: Male

DRUGS (3)
  1. PANTOPRAZOLE [Suspect]
     Dosage: 40 MG, 2X/DAY
     Route: 065
  2. L-THYROXIN [Concomitant]
     Dosage: UNK
  3. PROSTAGUTT [Concomitant]
     Dosage: UNK

REACTIONS (4)
  - Eye haemorrhage [Unknown]
  - Muscle spasms [Unknown]
  - Erythema [Unknown]
  - Vitamin B12 deficiency [Unknown]
